FAERS Safety Report 5081276-7 (Version None)
Quarter: 2006Q3

REPORT INFORMATION
  Report Type: 
  Country: None (occurrence: None)
  Receive Date: 20060816
  Receipt Date: 20060627
  Transmission Date: 20061208
  Serious: Yes (Hospitalization)
  Sender: FDA-Public Use
  Company Number: 2006AP02945

PATIENT
  Age: 69 Year
  Sex: Female

DRUGS (7)
  1. CRESTOR [Suspect]
     Indication: HYPERCHOLESTEROLAEMIA
     Route: 048
     Dates: start: 20060606, end: 20060626
  2. CALBLOCK [Concomitant]
     Route: 048
  3. NU-LOTAN [Concomitant]
     Route: 048
  4. 8-HOUR BAYER [Concomitant]
     Route: 048
  5. RIZE [Concomitant]
     Route: 048
  6. GRANDAXIN [Concomitant]
     Route: 048
  7. JUVELA NICOTINATE [Concomitant]
     Route: 048

REACTIONS (3)
  - ANAEMIA [None]
  - HYPOKALAEMIA [None]
  - POLYMYOSITIS [None]
